FAERS Safety Report 7415446-7 (Version None)
Quarter: 2011Q2

REPORT INFORMATION
  Report Type: 
  Country: None (occurrence: None)
  Receive Date: 20110414
  Receipt Date: 20110330
  Transmission Date: 20111010
  Serious: Yes (Hospitalization)
  Sender: FDA-Public Use
  Company Number: NL-MEDIMMUNE-MEDI-0013018

PATIENT
  Sex: Male
  Weight: 7.6 kg

DRUGS (2)
  1. SYNAGIS [Suspect]
     Route: 030
     Dates: start: 20100916, end: 20110303
  2. SYNAGIS [Suspect]
     Route: 030
     Dates: start: 20110328

REACTIONS (2)
  - DIET REFUSAL [None]
  - WEIGHT DECREASED [None]
